FAERS Safety Report 23711320 (Version 3)
Quarter: 2024Q2

REPORT INFORMATION
  Report Type: Spontaneous
  Country: US (occurrence: US)
  Receive Date: 20240405
  Receipt Date: 20240607
  Transmission Date: 20240716
  Serious: Yes (Other)
  Sender: FDA-Public Use
  Company Number: US-BRISTOL-MYERS SQUIBB COMPANY-2024-049256

PATIENT
  Age: 69 Year
  Sex: Female
  Weight: 104.33 kg

DRUGS (23)
  1. POMALYST [Suspect]
     Active Substance: POMALIDOMIDE
     Indication: Plasma cell myeloma
     Dosage: TOOK 1 MG FULL DOSE FOR 4 DAYS DESPITE INCREASING SIDE EFFECTS O SAFERTY MONITORING
     Route: 048
     Dates: start: 20231215
  2. POMALYST [Suspect]
     Active Substance: POMALIDOMIDE
     Dates: start: 202312, end: 20231229
  3. VELCADE [Suspect]
     Active Substance: BORTEZOMIB
     Indication: Herpes zoster
     Dates: end: 2017
  4. VELCADE [Suspect]
     Active Substance: BORTEZOMIB
     Indication: Neuropathy peripheral
  5. PROLIA [Suspect]
     Active Substance: DENOSUMAB
     Indication: Tooth loss
  6. PROLIA [Suspect]
     Active Substance: DENOSUMAB
     Indication: Skin infection
  7. DEXAMETHASONE [Suspect]
     Active Substance: DEXAMETHASONE
     Indication: Product used for unknown indication
     Dosage: ANY AMOUNT OF DEXAMETHASONE CAUSES HIGH LEVEL ANXIETY REACTION
  8. MIRALAX [Concomitant]
     Active Substance: POLYETHYLENE GLYCOL 3350
     Indication: Constipation
  9. CELEBREX [Concomitant]
     Active Substance: CELECOXIB
     Indication: Osteoarthritis
  10. CELEBREX [Concomitant]
     Active Substance: CELECOXIB
     Indication: Bone pain
  11. LINZESS [Concomitant]
     Active Substance: LINACLOTIDE
     Indication: Constipation
  12. ALUMINUM HYDROXIDE\MAGNESIUM CARBONATE [Concomitant]
     Active Substance: ALUMINUM HYDROXIDE\MAGNESIUM CARBONATE
     Indication: Impaired gastric emptying
  13. ALUMINUM HYDROXIDE\MAGNESIUM CARBONATE [Concomitant]
     Active Substance: ALUMINUM HYDROXIDE\MAGNESIUM CARBONATE
     Indication: Carditis
  14. TRAZODONE [Concomitant]
     Active Substance: TRAZODONE HYDROCHLORIDE
     Indication: Sleep terror
  15. TRAZODONE [Concomitant]
     Active Substance: TRAZODONE HYDROCHLORIDE
     Indication: Initial insomnia
  16. CENTRUM SILVER MULTIVITAMIN MULTIMINERAL PLUS LUTEIN + LYCOPENE [Concomitant]
     Indication: Vitamin supplementation
  17. PREDNISONE [Concomitant]
     Active Substance: PREDNISONE
     Indication: Swelling
     Dates: start: 202402
  18. PREDNISONE [Concomitant]
     Active Substance: PREDNISONE
     Indication: Abdominal distension
     Dates: start: 202403
  19. PREDNISONE [Concomitant]
     Active Substance: PREDNISONE
     Indication: Lymphoedema
  20. TOPROL XL [Concomitant]
     Active Substance: METOPROLOL SUCCINATE
     Indication: Palpitations
  21. VITAMIN B12 [Concomitant]
     Active Substance: CYANOCOBALAMIN
     Indication: Product used for unknown indication
  22. VITAMIN D3 [Concomitant]
     Active Substance: CHOLECALCIFEROL
     Indication: Product used for unknown indication
     Dosage: 250 UNITS
     Route: 048
  23. ASPIRIN [Concomitant]
     Active Substance: ASPIRIN
     Indication: Product used for unknown indication

REACTIONS (34)
  - Flank pain [Unknown]
  - Decreased appetite [Unknown]
  - Feeding disorder [Unknown]
  - Constipation [Unknown]
  - Hepatic enzyme increased [Unknown]
  - Erythema [Unknown]
  - Skin burning sensation [Unknown]
  - Rash erythematous [Unknown]
  - Swelling [Unknown]
  - Headache [Unknown]
  - Faeces hard [Unknown]
  - Faeces discoloured [Unknown]
  - Anal incontinence [Unknown]
  - Peripheral swelling [Unknown]
  - Joint swelling [Unknown]
  - Gait disturbance [Unknown]
  - Cough [Not Recovered/Not Resolved]
  - Blood pressure increased [Unknown]
  - Oxygen saturation decreased [Unknown]
  - Dyspnoea [Unknown]
  - Neuralgia [Unknown]
  - Bone pain [Unknown]
  - Pain [Unknown]
  - Effusion [Unknown]
  - Abdominal distension [Unknown]
  - Oedema [Unknown]
  - Herpes zoster [Unknown]
  - Tooth loss [Unknown]
  - Pain in extremity [Unknown]
  - White blood cell count increased [Unknown]
  - Abdominal pain upper [Unknown]
  - Lymphoedema [Unknown]
  - Impaired gastric emptying [Recovered/Resolved]
  - Anxiety [Unknown]

NARRATIVE: CASE EVENT DATE: 20231201
